FAERS Safety Report 7020539-2 (Version None)
Quarter: 2010Q3

REPORT INFORMATION
  Report Type: 
  Country: None (occurrence: None)
  Receive Date: 20100929
  Receipt Date: 20100920
  Transmission Date: 20110219
  Serious: Yes (Hospitalization)
  Sender: FDA-Public Use
  Company Number: BR-ASTRAZENECA-2010SE44423

PATIENT
  Age: 64 Year
  Sex: Female
  Weight: 53 kg

DRUGS (6)
  1. OMEPRAZOLE [Suspect]
     Indication: GASTRITIS
     Route: 048
     Dates: start: 20100101, end: 20100101
  2. ANASTROZOLE [Suspect]
     Indication: BREAST CANCER
     Route: 048
     Dates: start: 20100301
  3. NEXIUM [Suspect]
     Indication: GASTRITIS
     Route: 048
     Dates: start: 20100101
  4. ACCOLATE [Suspect]
     Indication: DEVICE FAILURE
     Route: 048
     Dates: start: 20100801
  5. SODIUM ALENDRONATE [Concomitant]
     Indication: BONE DENSITY DECREASED
     Route: 048
     Dates: start: 20100501
  6. PROPAFENONE HCL [Concomitant]
     Indication: ARRHYTHMIA
     Route: 048
     Dates: start: 20090101

REACTIONS (4)
  - DEVICE RELATED INFECTION [None]
  - GASTRITIS [None]
  - OFF LABEL USE [None]
  - PAIN [None]
